FAERS Safety Report 21007727 (Version 1)
Quarter: 2022Q2

REPORT INFORMATION
  Report Type: Spontaneous
  Country: CN (occurrence: CN)
  Receive Date: 20220627
  Receipt Date: 20220627
  Transmission Date: 20220721
  Serious: Yes (Death, Other)
  Sender: FDA-Public Use
  Company Number: CN-ASTELLAS-2022US022736

PATIENT
  Age: 79 Year
  Sex: Female

DRUGS (2)
  1. PROGRAF [Suspect]
     Active Substance: TACROLIMUS
     Indication: Glomerulonephritis chronic
     Route: 048
  2. PREDNISOLONE ACETATE [Concomitant]
     Active Substance: PREDNISOLONE ACETATE
     Indication: Glomerulonephritis chronic
     Route: 048

REACTIONS (4)
  - Glomerulonephritis chronic [Fatal]
  - Condition aggravated [Fatal]
  - Drug ineffective for unapproved indication [Unknown]
  - Off label use [Unknown]
